FAERS Safety Report 14114713 (Version 3)
Quarter: 2017Q4

REPORT INFORMATION
  Report Type: Spontaneous
  Country: IT (occurrence: IT)
  Receive Date: 20171023
  Receipt Date: 20171031
  Transmission Date: 20180321
  Serious: Yes (Other)
  Sender: FDA-Public Use
  Company Number: IT-PFIZER INC-2017448728

PATIENT
  Age: 42 Year
  Sex: Female

DRUGS (1)
  1. XANAX [Suspect]
     Active Substance: ALPRAZOLAM
     Indication: INSOMNIA
     Dosage: 4 MG, AS NEEDED
     Route: 048
     Dates: start: 20170924, end: 2017

REACTIONS (5)
  - Drug abuse [Unknown]
  - Bradyphrenia [Recovered/Resolved]
  - Overdose [Recovered/Resolved]
  - Product use in unapproved indication [Unknown]
  - Areflexia [Recovered/Resolved]

NARRATIVE: CASE EVENT DATE: 20170924
